FAERS Safety Report 4894581-1 (Version None)
Quarter: 2006Q1

REPORT INFORMATION
  Report Type: 
  Country: None (occurrence: None)
  Receive Date: 20060127
  Receipt Date: 20060123
  Transmission Date: 20060701
  Serious: Yes (Death, Other)
  Sender: FDA-Public Use
  Company Number: US-MERCK-0601USA02834

PATIENT
  Age: 82 Year
  Sex: Female
  Weight: 50 kg

DRUGS (1)
  1. VIOXX [Suspect]
     Route: 048
     Dates: start: 20000501, end: 20040201

REACTIONS (5)
  - ARTERIOSCLEROSIS [None]
  - BLOOD CHOLESTEROL INCREASED [None]
  - CEREBROVASCULAR ACCIDENT [None]
  - DEMENTIA [None]
  - OSTEOPOROSIS [None]
